FAERS Safety Report 7712316-1 (Version None)
Quarter: 2011Q3

REPORT INFORMATION
  Report Type: 
  Country: None (occurrence: None)
  Receive Date: 20110826
  Receipt Date: 20110815
  Transmission Date: 20111222
  Serious: Yes (Other)
  Sender: FDA-Public Use
  Company Number: US-KINGPHARMUSA00001-K201100965

PATIENT
  Sex: Male
  Weight: 123.81 kg

DRUGS (2)
  1. EMBEDA [Suspect]
     Indication: PAIN
     Dosage: 100 MG, BID
     Route: 048
     Dates: start: 20110207
  2. EMBEDA [Suspect]
     Dosage: 60 MG, BID
     Route: 048
     Dates: start: 20110125

REACTIONS (2)
  - HEPATIC CIRRHOSIS [None]
  - PAIN [None]
